FAERS Safety Report 6304360-6 (Version None)
Quarter: 2009Q3

REPORT INFORMATION
  Report Type: 
  Country: None (occurrence: None)
  Receive Date: 20090811
  Receipt Date: 20090730
  Transmission Date: 20100115
  Serious: Yes (Hospitalization)
  Sender: FDA-Public Use
  Company Number: TH-PFIZER INC-2009250988

PATIENT
  Age: 66 Year

DRUGS (14)
  1. SULPERAZON [Suspect]
     Indication: SEPSIS
     Dosage: 2 G, 1X/DAY
     Route: 042
  2. COLISTIN [Suspect]
     Indication: SEPSIS
     Dosage: 75 MG, 1X/DAY
  3. HUMULIN 70/30 [Concomitant]
  4. VITAMIN B 1-6-12 [Concomitant]
  5. RIVOTRIL [Concomitant]
  6. FBC [Concomitant]
  7. FOLIAMIN [Concomitant]
  8. PREVACID [Concomitant]
  9. LIPITOR [Concomitant]
  10. PLAVIX [Concomitant]
  11. ATARAX [Concomitant]
  12. MADIPLOT [Concomitant]
  13. SAMARIN [Concomitant]
  14. ALDACTONE [Concomitant]

REACTIONS (1)
  - STEVENS-JOHNSON SYNDROME [None]
